FAERS Safety Report 18058457 (Version 5)
Quarter: 2024Q4

REPORT INFORMATION
  Report Type: Spontaneous
  Country: US (occurrence: US)
  Receive Date: 20200723
  Receipt Date: 20241223
  Transmission Date: 20250115
  Serious: Yes (Other)
  Sender: AMGEN
  Company Number: US-PFIZER INC-2020278907

PATIENT
  Age: 65 Year
  Sex: Female
  Weight: 90.72 kg

DRUGS (2)
  1. ENBREL [Suspect]
     Active Substance: ETANERCEPT
     Indication: Rheumatoid arthritis
     Dosage: 50 MG/ML, ONE INJECTION EVERY 7 DAYS (ONCE A WEEK ON FRIDAYS)]
     Route: 065
     Dates: start: 2002, end: 202007
  2. METHOTREXATE SODIUM [Concomitant]
     Active Substance: METHOTREXATE SODIUM
     Indication: Rheumatoid arthritis
     Dosage: 17.5 MG (2.5MG SEVEN TABLETS BY MOUTH ONCE WEEKLY ON TUESDAYS)
     Route: 048
     Dates: start: 2001

REACTIONS (4)
  - Rheumatoid arthritis [Unknown]
  - Pain in extremity [Unknown]
  - Weight increased [Unknown]
  - Drug ineffective [Unknown]

NARRATIVE: CASE EVENT DATE: 20200101
